FAERS Safety Report 5355368-9 (Version None)
Quarter: 2007Q2

REPORT INFORMATION
  Report Type: 
  Country: None (occurrence: None)
  Receive Date: 20070611
  Receipt Date: 20070611
  Transmission Date: 20071010
  Serious: Yes (Other)
  Sender: FDA-Public Use
  Company Number: None

PATIENT
  Age: 83 Year
  Sex: Male
  Weight: 85.7298 kg

DRUGS (1)
  1. FINASTERIDE [Suspect]
     Indication: BENIGN PROSTATIC HYPERPLASIA
     Dosage: 5MG DAILY PO
     Route: 048
     Dates: start: 20070330, end: 20070401

REACTIONS (3)
  - GYNAECOMASTIA [None]
  - TESTICULAR PAIN [None]
  - TESTICULAR SWELLING [None]
